FAERS Safety Report 9175788 (Version 1)
Quarter: 2013Q1

REPORT INFORMATION
  Report Type: Spontaneous
  Country: ES (occurrence: ES)
  Receive Date: 20130320
  Receipt Date: 20130320
  Transmission Date: 20140127
  Serious: Yes (Life-Threatening, Hospitalization)
  Sender: FDA-Public Use
  Company Number: ES-VERTEX PHARMACEUTICALS INC.-2013-003881

PATIENT
  Age: 56 Year
  Sex: Male

DRUGS (7)
  1. INCIVO [Suspect]
     Indication: HEPATITIS C
     Dosage: 750 MG, TID
     Route: 048
     Dates: start: 20121008, end: 20130104
  2. RIBAVIRIN [Suspect]
     Indication: HEPATITIS C
     Dosage: DOSAGE FORM: UNSPECIFIED
     Route: 048
     Dates: start: 20130201
  3. RIBAVIRIN [Suspect]
     Dosage: DOSAGE FORM: UNSPECIFIED
     Route: 048
     Dates: start: 20130114, end: 20130124
  4. RIBAVIRIN [Suspect]
     Dosage: DOSAGE FORM: UNSPECIFIED
     Route: 048
     Dates: start: 20121008
  5. PEGASYS [Suspect]
     Indication: HEPATITIS C
     Dosage: DOSAGE FORM: UNSPECIFIED
     Route: 058
     Dates: start: 20121008
  6. PEGASYS [Suspect]
     Dosage: DOSAGE FORM: UNSPECIFIED
     Route: 058
     Dates: start: 20130114, end: 20130124
  7. PEGASYS [Suspect]
     Dosage: DOSAGE FORM: UNSPECIFIED
     Route: 058
     Dates: start: 20130201

REACTIONS (2)
  - Aplasia pure red cell [Recovered/Resolved]
  - Rash [Recovered/Resolved]
